FAERS Safety Report 19786659 (Version 2)
Quarter: 2021Q4

REPORT INFORMATION
  Report Type: Spontaneous
  Country: FR (occurrence: FR)
  Receive Date: 20210903
  Receipt Date: 20211014
  Transmission Date: 20220303
  Serious: Yes (Hospitalization, Other)
  Sender: FDA-Public Use
  Company Number: FR-GRUNENTHAL-2021-263302

PATIENT
  Age: 25 Year
  Sex: Female

DRUGS (3)
  1. TRAMADOL [Suspect]
     Active Substance: TRAMADOL
     Indication: Procedural pain
     Dosage: 1500 MILLIGRAM, QD
     Dates: start: 2014, end: 2019
  2. TRAMADOL [Suspect]
     Active Substance: TRAMADOL
     Dosage: 1500 MILLIGRAM (1000 TO 1500 MG)
  3. CODEINE [Concomitant]
     Active Substance: CODEINE
     Indication: Procedural pain
     Dosage: UNK
     Route: 065
     Dates: start: 2014

REACTIONS (9)
  - Epilepsy [Recovering/Resolving]
  - Drug dependence [Recovering/Resolving]
  - Somnolence [Unknown]
  - Seizure [Recovering/Resolving]
  - Withdrawal syndrome [Unknown]
  - Intentional product misuse [Unknown]
  - Maternal exposure during pregnancy [Recovered/Resolved]
  - Drug abuse [Unknown]
  - Intentional overdose [Unknown]
